FAERS Safety Report 21593043 (Version 1)
Quarter: 2022Q4

REPORT INFORMATION
  Report Type: Spontaneous
  Country: CN (occurrence: CN)
  Receive Date: 20221114
  Receipt Date: 20221114
  Transmission Date: 20230112
  Serious: Yes (Hospitalization, Other)
  Sender: FDA-Public Use
  Company Number: CN-WOCKHARDT BIO AG-2022WBA000174

PATIENT
  Age: 55 Year
  Sex: Female

DRUGS (1)
  1. IMATINIB [Suspect]
     Active Substance: IMATINIB
     Indication: Chronic myeloid leukaemia
     Dosage: 400 MILLIGRAM, QD
     Route: 065

REACTIONS (5)
  - Angiocentric lymphoma [Recovering/Resolving]
  - Septic shock [Recovering/Resolving]
  - Respiratory distress [Recovering/Resolving]
  - Sinus tachycardia [Recovering/Resolving]
  - Infection [Recovering/Resolving]
